FAERS Safety Report 7095178-8 (Version None)
Quarter: 2010Q4

REPORT INFORMATION
  Report Type: 
  Country: None (occurrence: None)
  Receive Date: 20101025
  Receipt Date: 20101018
  Transmission Date: 20110411
  Serious: Yes (Hospitalization)
  Sender: FDA-Public Use
  Company Number: AEUSA201000219

PATIENT
  Age: 60 Year
  Sex: Female
  Weight: 71.6683 kg

DRUGS (10)
  1. GAMUNEX [Suspect]
     Indication: MYASTHENIA GRAVIS
     Dosage: 45 GM; QOW; IV
     Route: 042
     Dates: start: 20091001
  2. GAMUNEX [Suspect]
     Indication: MYASTHENIA GRAVIS
     Dosage: 45 GM; QOW; IV
     Route: 042
     Dates: start: 20091001
  3. IMURAN [Suspect]
     Indication: MYASTHENIA GRAVIS
     Dosage: 100 MG; QOD;
     Dates: start: 19900101
  4. PREDNISONE [Concomitant]
  5. SIMVASTATIN [Concomitant]
  6. MESTINON [Concomitant]
  7. LEXAPRO [Concomitant]
  8. SYNTHROID [Concomitant]
  9. LEVEMIR [Concomitant]
  10. BENADRYL [Concomitant]

REACTIONS (1)
  - SUBARACHNOID HAEMORRHAGE [None]
